FAERS Safety Report 23146895 (Version 1)
Quarter: 2023Q4

REPORT INFORMATION
  Report Type: Spontaneous
  Country: CN (occurrence: CN)
  Receive Date: 20231106
  Receipt Date: 20231106
  Transmission Date: 20240109
  Serious: Yes (Other)
  Sender: FDA-Public Use
  Company Number: CN-NOVITIUMPHARMA-2023CNNVP01899

PATIENT
  Age: 79 Year
  Sex: Female

DRUGS (5)
  1. PREDNISONE [Suspect]
     Active Substance: PREDNISONE
     Indication: Natural killer-cell leukaemia
  2. TUCIDINOSTAT [Concomitant]
     Active Substance: TUCIDINOSTAT
     Indication: Natural killer-cell leukaemia
     Route: 048
  3. ETOPOSIDE [Concomitant]
     Active Substance: ETOPOSIDE
     Indication: Natural killer-cell leukaemia
  4. CYCLOPHOSPHAMIDE [Concomitant]
     Active Substance: CYCLOPHOSPHAMIDE
     Indication: Natural killer-cell leukaemia
  5. VINCRISTINE [Concomitant]
     Active Substance: VINCRISTINE
     Indication: Natural killer-cell leukaemia

REACTIONS (1)
  - Neutropenia [Recovered/Resolved]
